FAERS Safety Report 5035182-4 (Version None)
Quarter: 2006Q2

REPORT INFORMATION
  Report Type: 
  Country: None (occurrence: None)
  Receive Date: 20060622
  Receipt Date: 20060620
  Transmission Date: 20061013
  Serious: Yes (Hospitalization)
  Sender: FDA-Public Use
  Company Number: 209725

PATIENT
  Age: 49 Year
  Sex: Male
  Weight: 67 kg

DRUGS (8)
  1. MABTHERA (RITUXIMAB) CONC FOR SOLUTION FOR INFUSION [Suspect]
     Indication: NON-HODGKIN'S LYMPHOMA
     Dosage: 680 MG, 1/WEEK, INTRAVENOUS
     Route: 042
     Dates: start: 20041006, end: 20041006
  2. ESOMEPRAZOLE (ESOMEPRAZOLE MAGNESIUM) [Concomitant]
  3. CARISOPRODOL [Concomitant]
  4. PINEX FORTE (CODEINE PHOSPHATE, ACETAMINOPHEN) [Concomitant]
  5. GLYCEROL (GLYCERIN) [Concomitant]
  6. ACETAMINOPHEN [Concomitant]
  7. DEXCHLORPHENIRAMINE (DEXCHLORPHENIRAMINE MALEATE) [Concomitant]
  8. STEROID NOS (STEROID NOS) [Concomitant]

REACTIONS (1)
  - ANAPHYLACTOID REACTION [None]
